FAERS Safety Report 5875911-0 (Version None)
Quarter: 2008Q3

REPORT INFORMATION
  Report Type: 
  Country: None (occurrence: None)
  Receive Date: 20080910
  Receipt Date: 20080902
  Transmission Date: 20090109
  Serious: Yes (Death)
  Sender: FDA-Public Use
  Company Number: PHHY2008JP19496

PATIENT
  Age: 77 Year
  Sex: Female

DRUGS (1)
  1. ICL670A ICL+DISTAB [Suspect]
     Dosage: 500 MG DAILY
     Route: 048
     Dates: start: 20080811, end: 20080824

REACTIONS (1)
  - CARDIAC FAILURE [None]
